FAERS Safety Report 5160178-1 (Version None)
Quarter: 2006Q4

REPORT INFORMATION
  Report Type: 
  Country: None (occurrence: None)
  Receive Date: 20061120
  Receipt Date: 20061101
  Transmission Date: 20070319
  Serious: Yes (Other)
  Sender: FDA-Public Use
  Company Number: US-2006-026166

PATIENT
  Age: 51 Year
  Sex: Female
  Weight: 86 kg

DRUGS (8)
  1. BETASERON [Suspect]
     Indication: RELAPSING-REMITTING MULTIPLE SCLEROSIS
     Dosage: SEE IMAGE
     Route: 058
     Dates: start: 20031106, end: 20060704
  2. BETASERON [Suspect]
     Indication: RELAPSING-REMITTING MULTIPLE SCLEROSIS
     Dosage: SEE IMAGE
     Route: 058
     Dates: start: 20060907
  3. METFORMIN HCL [Concomitant]
  4. LISINOPRIL W/HYDROCHLOROTHIAZIDE (LISINOPRIL) [Concomitant]
  5. GLYBURIDE [Concomitant]
  6. FLUOXETINE [Concomitant]
  7. LOVASTATIN [Concomitant]
  8. ASPIRIN [Concomitant]

REACTIONS (1)
  - ARTHRITIS [None]
